FAERS Safety Report 10744507 (Version 1)
Quarter: 2015Q1

REPORT INFORMATION
  Report Type: Spontaneous
  Country: CN (occurrence: None)
  Receive Date: 20150126
  Receipt Date: 20150126
  Transmission Date: 20150721
  Serious: Yes (Hospitalization)
  Sender: FDA-Public Use
  Company Number: CN-2015VAL000054

PATIENT
  Age: 81 Year
  Sex: Female

DRUGS (1)
  1. LOTENSIN [Suspect]
     Active Substance: BENAZEPRIL HYDROCHLORIDE
     Indication: HYPERTENSION
     Dosage: UNK , ORAL
     Route: 048
     Dates: start: 20041209, end: 20140704

REACTIONS (10)
  - Incorrect drug administration duration [None]
  - Sinus bradycardia [None]
  - Atrioventricular block first degree [None]
  - Hypertension [None]
  - Visual impairment [None]
  - Arrhythmia [None]
  - Nausea [None]
  - Cold sweat [None]
  - Dizziness [None]
  - Lacunar infarction [None]

NARRATIVE: CASE EVENT DATE: 201407
